FAERS Safety Report 9871336 (Version 1)
Quarter: 2014Q1

REPORT INFORMATION
  Report Type: Spontaneous
  Country: JP (occurrence: JP)
  Receive Date: 20140205
  Receipt Date: 20140205
  Transmission Date: 20141002
  Serious: Yes (Life-Threatening, Other)
  Sender: FDA-Public Use
  Company Number: JP-ASTRAZENECA-2014SE08055

PATIENT
  Age: 40 Year
  Sex: Male
  Weight: 80 kg

DRUGS (2)
  1. SEROQUEL [Suspect]
     Indication: SUICIDE ATTEMPT
     Dosage: 10 TABLETS OF 25 MG AND 14 TABLETS OF 100 MG, 1650 MG
     Route: 048
     Dates: start: 20140127, end: 20140127
  2. ANTIEPILEPTICS [Suspect]
     Indication: SUICIDE ATTEMPT
     Dates: start: 20140127, end: 20140127

REACTIONS (3)
  - Intentional overdose [Unknown]
  - Suicide attempt [Unknown]
  - Altered state of consciousness [Unknown]
